FAERS Safety Report 8805168 (Version 1)
Quarter: 2012Q4

REPORT INFORMATION
  Report Type: 
  Country: US (occurrence: US)
  Receive Date: 20120924
  Receipt Date: 20120924
  Transmission Date: 20130627
  Serious: No
  Sender: FDA-Public Use
  Company Number: US-ALLERGAN-1207826US

PATIENT
  Age: 77 Year
  Sex: Female

DRUGS (1)
  1. LUMIGAN� 0.01% [Suspect]
     Indication: GLAUCOMA
     Dosage: UNK
     Dates: start: 2001

REACTIONS (2)
  - Blood pressure decreased [Recovered/Resolved]
  - Fatigue [Recovered/Resolved]
